FAERS Safety Report 19888235 (Version 1)
Quarter: 2021Q3

REPORT INFORMATION
  Report Type: Spontaneous
  Country: US (occurrence: US)
  Receive Date: 20210927
  Receipt Date: 20210927
  Transmission Date: 20211014
  Serious: No
  Sender: FDA-Public Use
  Company Number: None

PATIENT
  Sex: Male
  Weight: 98 kg

DRUGS (17)
  1. TEMOZOLOMIDE. [Suspect]
     Active Substance: TEMOZOLOMIDE
     Indication: BRAIN NEOPLASM MALIGNANT
     Dosage: ?          OTHER FREQUENCY:QD FOR 42 DAYS;?
     Route: 048
  2. PROCHLORPERAZINE. [Concomitant]
     Active Substance: PROCHLORPERAZINE
  3. FLUTICASONE. [Concomitant]
     Active Substance: FLUTICASONE
  4. LOSARTAN. [Concomitant]
     Active Substance: LOSARTAN
  5. CLEARLAX [Concomitant]
     Active Substance: POLYETHYLENE GLYCOL 3350
  6. BUDESONIDE. [Concomitant]
     Active Substance: BUDESONIDE
  7. TEMOZOLOMIDE. [Suspect]
     Active Substance: TEMOZOLOMIDE
     Indication: BRAIN NEOPLASM MALIGNANT
     Dosage: ?          OTHER FREQUENCY:QD FOR 42 DAYS;?
     Route: 048
  8. DECADRON [Concomitant]
     Active Substance: DEXAMETHASONE
  9. WIXELA INHUB [Concomitant]
     Active Substance: FLUTICASONE PROPIONATE\SALMETEROL XINAFOATE
  10. ONDANSETRON [Concomitant]
     Active Substance: ONDANSETRON
  11. MONTELUKAST [Concomitant]
     Active Substance: MONTELUKAST SODIUM
  12. MUCUS RELIEF [Concomitant]
     Active Substance: GUAIFENESIN
  13. ESOMEPRAZOLE. [Concomitant]
     Active Substance: ESOMEPRAZOLE MAGNESIUM
  14. FINASTERIDE. [Concomitant]
     Active Substance: FINASTERIDE
  15. ALFUZOSIN [Concomitant]
     Active Substance: ALFUZOSIN
  16. BACTRIM [Concomitant]
     Active Substance: SULFAMETHOXAZOLE\TRIMETHOPRIM
  17. ATIVAN [Concomitant]
     Active Substance: LORAZEPAM

REACTIONS (1)
  - Hospice care [None]
